FAERS Safety Report 25776658 (Version 1)
Quarter: 2025Q3

REPORT INFORMATION
  Report Type: Spontaneous
  Country: US (occurrence: US)
  Receive Date: 20250909
  Receipt Date: 20250909
  Transmission Date: 20251021
  Serious: No
  Sender: DOMPE FARMACEUTICI
  Company Number: US-FARMAPROD-202503-0837

PATIENT
  Sex: Female
  Weight: 63.5 kg

DRUGS (26)
  1. OXERVATE [Suspect]
     Active Substance: CENEGERMIN-BKBJ
     Indication: Ulcerative keratitis
     Route: 047
     Dates: start: 20250310
  2. OXERVATE [Suspect]
     Active Substance: CENEGERMIN-BKBJ
     Indication: Neurotrophic keratopathy
  3. OXERVATE [Suspect]
     Active Substance: CENEGERMIN-BKBJ
  4. OXERVATE [Suspect]
     Active Substance: CENEGERMIN-BKBJ
  5. DORZOLAMIDE\TIMOLOL [Concomitant]
     Active Substance: DORZOLAMIDE\TIMOLOL
  6. ALDACTONE [Concomitant]
     Active Substance: SPIRONOLACTONE
  7. PROTONIX [Concomitant]
     Active Substance: PANTOPRAZOLE SODIUM
  8. SYNTHROID [Concomitant]
     Active Substance: LEVOTHYROXINE SODIUM
  9. SYSTANE ULTRA [Concomitant]
     Active Substance: POLYETHYLENE GLYCOL 400\PROPYLENE GLYCOL
  10. TYLENOL PM EXTRA STRENGTH [Concomitant]
     Active Substance: ACETAMINOPHEN\DIPHENHYDRAMINE HYDROCHLORIDE
  11. COMPLETE MV ADULT 50 PLUS [Concomitant]
  12. NIFEDIPINE [Concomitant]
     Active Substance: NIFEDIPINE
  13. BIOTIN [Concomitant]
     Active Substance: BIOTIN
  14. PREDNISONE [Concomitant]
     Active Substance: PREDNISONE
  15. VALGANCICLOVIR HYDROCHLORIDE [Concomitant]
     Active Substance: VALGANCICLOVIR HYDROCHLORIDE
  16. ALBUTEROL SULFATE [Concomitant]
     Active Substance: ALBUTEROL SULFATE
  17. PREDNISOLONE ACETATE [Concomitant]
     Active Substance: PREDNISOLONE ACETATE
  18. MOXIFLOXACIN [Concomitant]
     Active Substance: MOXIFLOXACIN
  19. LOTEMAX SM [Concomitant]
     Active Substance: LOTEPREDNOL ETABONATE
  20. ALPHAGAN P [Concomitant]
     Active Substance: BRIMONIDINE TARTRATE
  21. FLAXSEED [Concomitant]
     Active Substance: FLAX SEED
  22. CITRICAL [CALCIUM] [Concomitant]
  23. BUDESONIDE [Concomitant]
     Active Substance: BUDESONIDE
  24. MELATONIN [Concomitant]
     Active Substance: MELATONIN
  25. BRIMONIDINE TARTRATE [Concomitant]
     Active Substance: BRIMONIDINE TARTRATE
  26. METAMUCIL [Concomitant]
     Active Substance: PLANTAGO SEED

REACTIONS (12)
  - Eye pain [Unknown]
  - Eyelid pain [Not Recovered/Not Resolved]
  - Eye swelling [Unknown]
  - Lacrimation increased [Unknown]
  - Dry throat [Unknown]
  - Swelling of eyelid [Unknown]
  - Wrong technique in product usage process [Unknown]
  - Vitrectomy [Unknown]
  - Intraocular pressure increased [Unknown]
  - Eyelid irritation [Unknown]
  - Eye irritation [Unknown]
  - Eye pain [Unknown]
